FAERS Safety Report 6408563-1 (Version None)
Quarter: 2009Q4

REPORT INFORMATION
  Report Type: 
  Country: None (occurrence: None)
  Receive Date: 20091021
  Receipt Date: 20091014
  Transmission Date: 20100525
  Serious: Yes (Hospitalization)
  Sender: FDA-Public Use
  Company Number: US-BAYER-200932387NA

PATIENT
  Age: 62 Year
  Sex: Female
  Weight: 82 kg

DRUGS (2)
  1. NEXAVAR [Suspect]
     Indication: HEPATIC NEOPLASM MALIGNANT
     Dosage: AS USED: 800 MG  UNIT DOSE: 200 MG
     Route: 048
     Dates: start: 20090624, end: 20090707
  2. HYPERTENSION MEDS [Concomitant]
     Dates: end: 20090705

REACTIONS (5)
  - CEREBRAL HAEMORRHAGE [None]
  - CONVULSION [None]
  - HEADACHE [None]
  - HYPERAESTHESIA [None]
  - HYPOTENSION [None]
